FAERS Safety Report 7688113-2 (Version None)
Quarter: 2011Q3

REPORT INFORMATION
  Report Type: 
  Country: None (occurrence: None)
  Receive Date: 20110817
  Receipt Date: 20110810
  Transmission Date: 20111222
  Serious: Yes (Hospitalization)
  Sender: FDA-Public Use
  Company Number: US-GILEAD-2011-0042834

PATIENT
  Sex: Male

DRUGS (1)
  1. LETAIRIS [Suspect]
     Indication: PRODUCT USED FOR UNKNOWN INDICATION
     Route: 048
     Dates: start: 20090721

REACTIONS (5)
  - CARDIAC PACEMAKER INSERTION [None]
  - BRADYCARDIA [None]
  - HAEMATOCRIT DECREASED [None]
  - EPISTAXIS [None]
  - HAEMOGLOBIN DECREASED [None]
